FAERS Safety Report 11344077 (Version 2)
Quarter: 2015Q3

REPORT INFORMATION
  Report Type: Spontaneous
  Country: IT (occurrence: IT)
  Receive Date: 20150806
  Receipt Date: 20150910
  Transmission Date: 20151125
  Serious: Yes (Other)
  Sender: FDA-Public Use
  Company Number: IT-ROCHE-1618307

PATIENT
  Age: 78 Year
  Sex: Female
  Weight: 75 kg

DRUGS (6)
  1. MABTHERA [Suspect]
     Active Substance: RITUXIMAB
     Indication: CHRONIC LYMPHOCYTIC LEUKAEMIA
     Dosage: 1400 MG-VIAL(GLASS)15 ML (120MG/ML) - 1 VIAL?CONCENTRATE FOR SOLUTION FOR INTRAVENOUS INFUSION
     Route: 042
     Dates: start: 20150519, end: 20150620
  2. CARDIOASPIRIN [Concomitant]
     Active Substance: ASPIRIN
     Route: 042
  3. DIBASE [Concomitant]
     Active Substance: CHOLECALCIFEROL
     Dosage: 25,000 IU/2.5 ML ORAL SOLUTION- 1 VIAL, 2.5 ML
     Route: 048
  4. COMBISARTAN [Concomitant]
     Active Substance: HYDROCHLOROTHIAZIDE\LOSARTAN POTASSIUM
     Route: 048
  5. LEVACT (ITALY) [Concomitant]
     Active Substance: BENDAMUSTINE HYDROCHLORIDE
     Route: 042
  6. DOXAZOSIN [Concomitant]
     Active Substance: DOXAZOSIN\DOXAZOSIN MESYLATE
     Route: 042

REACTIONS (2)
  - Gastrooesophageal reflux disease [Recovering/Resolving]
  - Weight decreased [Recovering/Resolving]

NARRATIVE: CASE EVENT DATE: 20150620
